FAERS Safety Report 9719941 (Version 1)
Quarter: 2013Q4

REPORT INFORMATION
  Report Type: Spontaneous
  Country: DE (occurrence: DE)
  Receive Date: 20131128
  Receipt Date: 20131128
  Transmission Date: 20140711
  Serious: Yes (Hospitalization)
  Sender: FDA-Public Use
  Company Number: DE-ASTRAZENECA-2013SE85451

PATIENT
  Age: 71 Year
  Sex: Male

DRUGS (1)
  1. PULMICORT TOPINASAL [Suspect]
     Indication: HOUSE DUST ALLERGY
     Dosage: 1 PUFF PER NOSTRIL DAILY
     Route: 045

REACTIONS (2)
  - Osteoporosis [Not Recovered/Not Resolved]
  - Spinal fracture [Not Recovered/Not Resolved]
